FAERS Safety Report 5207042-7 (Version None)
Quarter: 2007Q1

REPORT INFORMATION
  Report Type: 
  Country: None (occurrence: None)
  Receive Date: 20070110
  Receipt Date: 20070102
  Transmission Date: 20070707
  Serious: Yes (Life-Threatening)
  Sender: FDA-Public Use
  Company Number: 2007-152532-NL

PATIENT
  Age: 3 Year
  Sex: Male
  Weight: 13.4 kg

DRUGS (10)
  1. ROCURONIUM [Suspect]
     Indication: INTUBATION
     Dosage: 15 MG ONCE INTRAVENOUS (NOS)
     Route: 042
  2. PROPOFOL [Suspect]
     Indication: INTUBATION
     Dosage: 15 MG ONCE INTRAVENOUS (NOS)
     Route: 042
  3. MIDAZOLAM HYDROCHLORIDE [Concomitant]
  4. NITROUS OXIDE W/ OXYGEN [Concomitant]
  5. OXYGEN [Concomitant]
  6. SEVOFLURANE [Concomitant]
  7. FENTANYL TRANSDERMAL SYSTEM [Concomitant]
  8. WARFARIN SODIUM [Concomitant]
  9. DIGOXIN [Concomitant]
  10. FUROSEMIDE [Concomitant]

REACTIONS (5)
  - BRADYCARDIA [None]
  - CARDIAC ARREST [None]
  - CARDIAC FAILURE [None]
  - DRUG INEFFECTIVE [None]
  - HYPERTENSION [None]
